FAERS Safety Report 25849279 (Version 1)
Quarter: 2025Q3

REPORT INFORMATION
  Report Type: Spontaneous
  Country: EU (occurrence: EU)
  Receive Date: 20250925
  Receipt Date: 20250925
  Transmission Date: 20251021
  Serious: Yes (Hospitalization, Other)
  Sender: KVK-TECH
  Company Number: EU-KVK-TECH, INC-20250900142

PATIENT

DRUGS (6)
  1. INDOMETHACIN [Interacting]
     Active Substance: INDOMETHACIN
     Indication: Pericarditis
     Route: 065
  2. DARUNAVIR\RITONAVIR [Interacting]
     Active Substance: DARUNAVIR\RITONAVIR
     Indication: HIV infection
     Route: 065
  3. EMTRICITABINE\TENOFOVIR [Interacting]
     Active Substance: EMTRICITABINE\TENOFOVIR
     Indication: HIV infection
     Route: 065
  4. COTRIMOXAZOLE [Interacting]
     Active Substance: SULFAMETHOXAZOLE\TRIMETHOPRIM
     Indication: Opportunistic infection prophylaxis
     Route: 065
  5. AZITHROMYCIN ANHYDROUS [Interacting]
     Active Substance: AZITHROMYCIN ANHYDROUS
     Indication: Opportunistic infection prophylaxis
     Route: 065
  6. LAMIVUDINE\RALTEGRAVIR POTASSIUM [Concomitant]
     Active Substance: LAMIVUDINE\RALTEGRAVIR POTASSIUM
     Indication: HIV infection

REACTIONS (3)
  - Hepatitis cholestatic [Recovered/Resolved]
  - Acute kidney injury [Not Recovered/Not Resolved]
  - Drug interaction [Recovered/Resolved]
